FAERS Safety Report 25057430 (Version 2)
Quarter: 2025Q1

REPORT INFORMATION
  Report Type: Spontaneous
  Country: AE (occurrence: AE)
  Receive Date: 20250310
  Receipt Date: 20250320
  Transmission Date: 20250408
  Serious: Yes (Hospitalization, Other)
  Sender: ALKEM
  Company Number: None

PATIENT
  Age: 39 Year
  Sex: Female

DRUGS (1)
  1. IBUPROFEN [Suspect]
     Active Substance: IBUPROFEN
     Indication: Arthralgia
     Dosage: 400 MILLIGRAM, BID (EVERY 12 HOUR)
     Route: 065

REACTIONS (5)
  - Burning sensation [Unknown]
  - Dysuria [Unknown]
  - Stevens-Johnson syndrome [Recovered/Resolved]
  - Vomiting [Unknown]
  - Diarrhoea [Unknown]
